FAERS Safety Report 8846965 (Version 1)
Quarter: 2012Q4

REPORT INFORMATION
  Report Type: Spontaneous
  Country: US (occurrence: None)
  Receive Date: 20121017
  Receipt Date: 20121017
  Transmission Date: 20130627
  Serious: Yes (Life-Threatening, Disabling)
  Sender: FDA-Public Use
  Company Number: None

PATIENT
  Age: 88 Year
  Sex: Male
  Weight: 81.65 kg

DRUGS (1)
  1. INDOMETHACIN [Suspect]
     Dosage: 1 capsule
     Route: 048
     Dates: start: 20121010, end: 20121010

REACTIONS (2)
  - Disorientation [None]
  - Incoherent [None]
